FAERS Safety Report 19690951 (Version 4)
Quarter: 2021Q4

REPORT INFORMATION
  Report Type: Report from Study
  Country: CA (occurrence: CA)
  Receive Date: 20210812
  Receipt Date: 20211224
  Transmission Date: 20220303
  Serious: Yes (Disabling)
  Sender: FDA-Public Use
  Company Number: CA-BIOVITRUM-2021CA7303

PATIENT
  Age: 14 Year
  Sex: Female
  Weight: 40.9 kg

DRUGS (20)
  1. EMAPALUMAB [Suspect]
     Active Substance: EMAPALUMAB
     Indication: Familial haemophagocytic lymphohistiocytosis
     Route: 041
     Dates: start: 20210525, end: 20210525
  2. EMAPALUMAB [Suspect]
     Active Substance: EMAPALUMAB
     Route: 041
     Dates: start: 20210706, end: 20210706
  3. EMAPALUMAB [Suspect]
     Active Substance: EMAPALUMAB
     Route: 041
     Dates: start: 20210709, end: 20210709
  4. EMAPALUMAB [Suspect]
     Active Substance: EMAPALUMAB
     Route: 041
     Dates: start: 20210713, end: 20210713
  5. Lubricating [Concomitant]
     Dosage: ONCE DAILY IN EACH EYE
     Route: 047
  6. FUROSEMIDE [Concomitant]
     Active Substance: FUROSEMIDE
     Route: 042
  7. DEXAMETHASONE [Concomitant]
     Active Substance: DEXAMETHASONE
     Route: 042
  8. ERYTHROMYCIN [Concomitant]
     Active Substance: ERYTHROMYCIN
     Dosage: EACH EYE 2 TIMES DAILY
     Route: 047
  9. SODIUM CHLORIDE [Concomitant]
     Active Substance: SODIUM CHLORIDE
     Dosage: EACH NARE 1 SPRAY TWICE DAILY
  10. AVIBACTAM SODIUM\CEFTAZIDIME [Concomitant]
     Active Substance: AVIBACTAM SODIUM\CEFTAZIDIME
     Route: 042
  11. MEROPENEM [Concomitant]
     Active Substance: MEROPENEM
     Route: 042
  12. AMIKACIN [Concomitant]
     Active Substance: AMIKACIN
     Route: 042
  13. PANTOPRAZOLE [Concomitant]
     Active Substance: PANTOPRAZOLE
     Route: 042
  14. PHENOBARBITAL SODIUM [Concomitant]
     Active Substance: PHENOBARBITAL SODIUM
     Route: 042
  15. POLYETHYLENE GLYCOL 3350 [Concomitant]
     Active Substance: POLYETHYLENE GLYCOL 3350
     Route: 048
  16. AMPHOTERICIN B [Concomitant]
     Active Substance: AMPHOTERICIN B
     Route: 042
  17. Mycophenolate mofetil IV 6 mg/mL [Concomitant]
     Route: 042
  18. URSODIOL [Concomitant]
     Active Substance: URSODIOL
     Dosage: VIA FEEDING TUBE
  19. LEVETIRACETAM [Concomitant]
     Active Substance: LEVETIRACETAM
     Route: 042
  20. SODIUM BICARBONATE [Concomitant]
     Active Substance: SODIUM BICARBONATE
     Dosage: SWISH + SPIT

REACTIONS (2)
  - Sepsis [Recovered/Resolved]
  - Enterobacter infection [Recovered/Resolved]

NARRATIVE: CASE EVENT DATE: 20210728
